FAERS Safety Report 23997710 (Version 2)
Quarter: 2025Q3

REPORT INFORMATION
  Report Type: Report from Study
  Country: BR (occurrence: BR)
  Receive Date: 20240621
  Receipt Date: 20250929
  Transmission Date: 20251021
  Serious: Yes (Hospitalization, Other)
  Sender: SANOFI AVENTIS
  Company Number: BR-SA-SAC20240613000480

PATIENT
  Age: 36 Year
  Sex: Female
  Weight: 84 kg

DRUGS (2)
  1. AGALSIDASE BETA [Suspect]
     Active Substance: AGALSIDASE BETA
     Indication: Fabry^s disease
     Dosage: UNK UNK, Q15D
     Route: 042
     Dates: start: 2012, end: 20240518
  2. AGALSIDASE BETA [Suspect]
     Active Substance: AGALSIDASE BETA
     Dosage: UNK, QOW
     Route: 042
     Dates: end: 20250805

REACTIONS (2)
  - Transient ischaemic attack [Recovered/Resolved]
  - Hemiparesis [Recovered/Resolved]

NARRATIVE: CASE EVENT DATE: 20240603
